FAERS Safety Report 24426596 (Version 1)
Quarter: 2024Q4

REPORT INFORMATION
  Report Type: Spontaneous
  Country: US (occurrence: US)
  Receive Date: 20241011
  Receipt Date: 20241011
  Transmission Date: 20250115
  Serious: No
  Sender: ROCHE
  Company Number: US-ROCHE-10000099068

PATIENT
  Age: 37 Year
  Sex: Female

DRUGS (7)
  1. XOLAIR [Suspect]
     Active Substance: OMALIZUMAB
     Indication: Urticaria
     Route: 065
     Dates: start: 20241002
  2. XOLAIR [Suspect]
     Active Substance: OMALIZUMAB
     Indication: Angioedema
  3. TRELEGY ELLIPTA [Concomitant]
     Active Substance: FLUTICASONE FUROATE\UMECLIDINIUM BROMIDE\VILANTEROL TRIFENATATE
     Indication: Asthma
  4. SINGULAIR [Concomitant]
     Active Substance: MONTELUKAST SODIUM
     Indication: Asthma
  5. XYZAL [Concomitant]
     Active Substance: LEVOCETIRIZINE DIHYDROCHLORIDE
  6. PREDNISONE [Concomitant]
     Active Substance: PREDNISONE
  7. LEVOTHYROXINE [Concomitant]
     Active Substance: LEVOTHYROXINE

REACTIONS (5)
  - Asthenia [Unknown]
  - Dysarthria [Unknown]
  - Facial asymmetry [Unknown]
  - Erythema [Unknown]
  - Swelling of eyelid [Unknown]
